FAERS Safety Report 8435905-8 (Version None)
Quarter: 2012Q2

REPORT INFORMATION
  Report Type: 
  Country: None (occurrence: None)
  Receive Date: 20120614
  Receipt Date: 20120606
  Transmission Date: 20120825
  Serious: Yes (Hospitalization)
  Sender: FDA-Public Use
  Company Number: US-ASTRAZENECA-2012SE38063

PATIENT
  Age: 50 Year
  Sex: Male

DRUGS (2)
  1. SYNTHROID [Concomitant]
  2. CRESTOR [Suspect]
     Indication: HYPERLIPIDAEMIA
     Route: 048
     Dates: start: 20070101, end: 20120501

REACTIONS (1)
  - RHABDOMYOLYSIS [None]
